FAERS Safety Report 5627993-9 (Version None)
Quarter: 2008Q1

REPORT INFORMATION
  Report Type: 
  Country: None (occurrence: None)
  Receive Date: 20080215
  Receipt Date: 20080205
  Transmission Date: 20080703
  Serious: Yes (Other)
  Sender: FDA-Public Use
  Company Number: US-AMGEN-QUU248539

PATIENT
  Sex: Male
  Weight: 156.4 kg

DRUGS (10)
  1. ENBREL [Suspect]
     Indication: PSORIATIC ARTHROPATHY
     Route: 058
     Dates: start: 20030301, end: 20071101
  2. GLUCOPHAGE [Concomitant]
  3. ACTOS [Concomitant]
  4. ACCUPRIL [Concomitant]
  5. PREDNISONE TAB [Concomitant]
  6. INDOCIN [Concomitant]
  7. ALLOPURINOL [Concomitant]
  8. FLONASE [Concomitant]
  9. MISOPROSTOL [Concomitant]
  10. POTASSIUM CITRATE [Concomitant]

REACTIONS (2)
  - MYASTHENIA GRAVIS [None]
  - OCULAR MYASTHENIA [None]
